FAERS Safety Report 7993125-5 (Version None)
Quarter: 2011Q4

REPORT INFORMATION
  Report Type: 
  Country: None (occurrence: None)
  Receive Date: 20111219
  Receipt Date: 20110228
  Transmission Date: 20120403
  Serious: No
  Sender: FDA-Public Use
  Company Number: US-ASTRAZENECA-2011SE10961

PATIENT
  Age: 63 Year
  Sex: Male

DRUGS (3)
  1. ASPIRIN [Concomitant]
  2. CRESTOR [Suspect]
     Indication: PROPHYLAXIS
     Route: 048
     Dates: start: 20110224
  3. FLECAINIDE ACETATE [Concomitant]
     Indication: HEART RATE IRREGULAR

REACTIONS (2)
  - DIZZINESS [None]
  - HYPOTENSION [None]
